FAERS Safety Report 9818319 (Version 3)
Quarter: 2015Q1

REPORT INFORMATION
  Report Type: Spontaneous
  Country: US (occurrence: US)
  Receive Date: 20140115
  Receipt Date: 20150216
  Transmission Date: 20150721
  Serious: No
  Sender: FDA-Public Use
  Company Number: US-PFIZER INC-2014006002

PATIENT
  Sex: Female

DRUGS (3)
  1. MEDROL [Suspect]
     Active Substance: METHYLPREDNISOLONE
     Indication: ARTHROPOD STING
     Dosage: UNK
  2. PREDNISONE. [Suspect]
     Active Substance: PREDNISONE
     Indication: DERMATITIS CONTACT
     Dosage: UNK
  3. QUININE [Suspect]
     Active Substance: QUININE
     Indication: MUSCLE SPASMS

REACTIONS (4)
  - Dyspnoea [Unknown]
  - Drug hypersensitivity [Recovered/Resolved]
  - Vomiting [Unknown]
  - Chest discomfort [Unknown]
